FAERS Safety Report 10205208 (Version 1)
Quarter: 2014Q2

REPORT INFORMATION
  Report Type: Spontaneous
  Country: DE (occurrence: DE)
  Receive Date: 20140529
  Receipt Date: 20140529
  Transmission Date: 20141212
  Serious: Yes (Other)
  Sender: FDA-Public Use
  Company Number: DE-PFIZER INC-2014145508

PATIENT
  Sex: Female

DRUGS (1)
  1. SAYANA [Suspect]
     Dosage: 104 MG/0.65ML
     Dates: start: 2007

REACTIONS (1)
  - Coeliac disease [Unknown]
